FAERS Safety Report 8953253 (Version 2)
Quarter: 2012Q4

REPORT INFORMATION
  Report Type: 
  Country: JP (occurrence: JP)
  Receive Date: 20121206
  Receipt Date: 20121228
  Transmission Date: 20130627
  Serious: Yes (Hospitalization)
  Sender: FDA-Public Use
  Company Number: JP-BAYER-2012-037674

PATIENT
  Age: 59 Year
  Sex: Female

DRUGS (2)
  1. NEXAVAR [Suspect]
     Indication: CARCINOMA HEPATOCELLULAR
     Dosage: 400 mg, QOD
     Route: 048
     Dates: start: 20120423, end: 20120426
  2. NEXAVAR [Suspect]
     Indication: CARCINOMA HEPATOCELLULAR
     Dosage: 400 mg, QOD
     Route: 048
     Dates: start: 20120509, end: 20120719

REACTIONS (2)
  - C-reactive protein increased [Recovering/Resolving]
  - Pyrexia [Recovering/Resolving]
